FAERS Safety Report 18444275 (Version 1)
Quarter: 2020Q4

REPORT INFORMATION
  Report Type: Spontaneous
  Country: DE (occurrence: DE)
  Receive Date: 20201030
  Receipt Date: 20201030
  Transmission Date: 20210114
  Serious: Yes (Other)
  Sender: FDA-Public Use
  Company Number: NVSC2020DE289201

PATIENT
  Sex: Male
  Weight: 62 kg

DRUGS (1)
  1. ASPIRIN. [Suspect]
     Active Substance: ASPIRIN
     Indication: PRODUCT USED FOR UNKNOWN INDICATION
     Dosage: 1 DF, QD
     Route: 065
     Dates: start: 201410

REACTIONS (2)
  - Chest pain [Not Recovered/Not Resolved]
  - Mitral valve incompetence [Unknown]

NARRATIVE: CASE EVENT DATE: 202010
